FAERS Safety Report 7180505-3 (Version None)
Quarter: 2010Q4

REPORT INFORMATION
  Report Type: 
  Country: None (occurrence: None)
  Receive Date: 20101221
  Receipt Date: 20101208
  Transmission Date: 20110411
  Serious: Yes (Other)
  Sender: FDA-Public Use
  Company Number: US-CELGENEUS-163-21880-09100735

PATIENT
  Age: 49 Year
  Sex: Female
  Weight: 79.4 kg

DRUGS (6)
  1. REVLIMID [Suspect]
     Route: 048
     Dates: start: 20090916, end: 20091002
  2. REVLIMID [Suspect]
     Dosage: UNKNOWN
     Route: 048
     Dates: start: 20091028
  3. FLAVOPIRIDOL [Suspect]
     Dosage: 30MG/M2 OVER 30 MIN, 30MG/M2 OVER 4 HRS
     Route: 051
     Dates: start: 20090916, end: 20091002
  4. FLAVOPIRIDOL [Suspect]
     Dosage: 30MG/M2 OVER 30 MIN, THEN 50MG/M2 OVER 4 HRS
     Dates: start: 20090819
  5. DEXAMETHASONE [Concomitant]
     Indication: CYTOKINE RELEASE SYNDROME
     Route: 065
  6. DEXAMETHASONE [Concomitant]
     Route: 065

REACTIONS (13)
  - ALANINE AMINOTRANSFERASE INCREASED [None]
  - ANAEMIA [None]
  - BLOOD HUMAN CHORIONIC GONADOTROPIN POSITIVE [None]
  - CELLULITIS [None]
  - DEVICE RELATED INFECTION [None]
  - DIARRHOEA [None]
  - FEBRILE NEUTROPENIA [None]
  - HAEMOGLOBIN DECREASED [None]
  - HYPERGLYCAEMIA [None]
  - HYPOPHOSPHATAEMIA [None]
  - INFLUENZA [None]
  - PNEUMONIA [None]
  - TUMOUR LYSIS SYNDROME [None]
